FAERS Safety Report 8667562 (Version 2)
Quarter: 2013Q4

REPORT INFORMATION
  Report Type: Spontaneous
  Country: ES (occurrence: ES)
  Receive Date: 20120717
  Receipt Date: 20131031
  Transmission Date: 20140711
  Serious: Yes (Other)
  Sender: FDA-Public Use
  Company Number: ES-009507513-1207ESP002529

PATIENT
  Age: 58 Year
  Sex: Female

DRUGS (5)
  1. TRYPTIZOL [Suspect]
     Indication: DEPRESSION
     Dosage: 75 MG, QD
     Dates: start: 200404, end: 201205
  2. TRYPTIZOL [Suspect]
     Dosage: 50 MG, QD
     Route: 048
     Dates: start: 201205, end: 201206
  3. TRYPTIZOL [Suspect]
     Dosage: 75 MG, QD
     Route: 048
     Dates: start: 20120705
  4. RIVOTRIL [Concomitant]
     Dosage: UNK, QD
  5. HEMICRANEAL (ACETAMINOPHEN (+) CAFFEINE (+) ERGOTAMINE TARTRATE) [Concomitant]
     Dosage: UNK, PRN

REACTIONS (1)
  - Dizziness [Recovering/Resolving]
